FAERS Safety Report 10522606 (Version 2)
Quarter: 2014Q4

REPORT INFORMATION
  Report Type: Spontaneous
  Country: US (occurrence: None)
  Receive Date: 20141010
  Receipt Date: 20141209
  Transmission Date: 20150528
  Serious: Yes (Life-Threatening)
  Sender: FDA-Public Use
  Company Number: 1713747-2014-999165

PATIENT
  Age: 80 Year
  Sex: Male

DRUGS (1)
  1. 0.9% SODIUM CHLORIDE INJECTION, USP IN MINI-BAG PLUS CONTAINER [Suspect]
     Active Substance: SODIUM CHLORIDE
     Indication: CHRONIC KIDNEY DISEASE
     Dosage: HEMODIALYSIS
     Dates: start: 20140415

REACTIONS (5)
  - Musculoskeletal pain [None]
  - Chest pain [None]
  - Pallor [None]
  - Skin discolouration [None]
  - Dyspnoea [None]

NARRATIVE: CASE EVENT DATE: 20140415
